FAERS Safety Report 4349363-6 (Version None)
Quarter: 2004Q2

REPORT INFORMATION
  Report Type: 
  Country: None (occurrence: None)
  Receive Date: 20040428
  Receipt Date: 20040420
  Transmission Date: 20050107
  Serious: Yes (Hospitalization)
  Sender: FDA-Public Use
  Company Number: PHNU2004DE01567

PATIENT
  Age: 36 Year
  Sex: Male

DRUGS (20)
  1. CLOZARIL [Suspect]
     Indication: SCHIZOPHRENIA
     Dosage: 12.5 MG/DAY
     Route: 048
     Dates: start: 20030303, end: 20030303
  2. CLOZARIL [Suspect]
     Dosage: 25 MG/DAY
     Route: 048
     Dates: start: 20030304, end: 20030304
  3. RISPERDAL [Suspect]
     Dosage: 1 TO 3 MG/DAY
     Dates: start: 20020920, end: 20020923
  4. RISPERDAL [Suspect]
     Dosage: 4 MG/DAY
     Dates: start: 20020924, end: 20030109
  5. RISPERDAL [Suspect]
     Dosage: 5 MG/DAY
     Dates: start: 20030110, end: 20030121
  6. RISPERDAL [Suspect]
     Dosage: 6 MG/DAY
     Dates: start: 20030122
  7. ZYPREXA [Suspect]
     Dosage: 5 TO 10 MG/DAY
     Dates: start: 20021018, end: 20021106
  8. ZYPREXA [Suspect]
     Dosage: 15 MG/DAY
     Dates: start: 20021107, end: 20021212
  9. ZYPREXA [Suspect]
     Dosage: 20 MG/DAY
     Dates: start: 20021213, end: 20030305
  10. ZYPREXA [Suspect]
     Dosage: 10 MG/DAY
     Dates: start: 20030306
  11. CIPRAMIL [Suspect]
     Dosage: 20 MG/DAY
     Dates: start: 20030125, end: 20030304
  12. BRONCHORETARD [Suspect]
     Dosage: 350 MG/DAY
     Dates: start: 20030303
  13. LORAZEPAM [Concomitant]
     Dosage: 3 TO 4 MG/DAY
     Dates: start: 20020920, end: 20021020
  14. LORAZEPAM [Concomitant]
     Dosage: 2.5 TO 0.5 MG/DAY
     Dates: start: 20021021, end: 20021210
  15. LORAZEPAM [Concomitant]
     Dosage: 2 TO 1.5 MG/DAY
     Dates: start: 20021211, end: 20030203
  16. LORAZEPAM [Concomitant]
     Dosage: 1 MG/DAY
     Dates: start: 20030204, end: 20030227
  17. LORAZEPAM [Concomitant]
     Dosage: 0.5 MG/DAY
     Dates: start: 20030228, end: 20030302
  18. ACETYLSALICYLIC ACID SRT [Concomitant]
     Dosage: 100 MG/DAY
  19. PULMICORT [Concomitant]
     Dosage: 0.8 MG/DAY
     Dates: start: 20030304
  20. BEROTEC [Concomitant]
     Dosage: 0.4 MG/DAY
     Dates: start: 20030304

REACTIONS (5)
  - DEPRESSED LEVEL OF CONSCIOUSNESS [None]
  - DRUG INTERACTION [None]
  - FACIAL BONES FRACTURE [None]
  - FALL [None]
  - GRAND MAL CONVULSION [None]
